FAERS Safety Report 6923862-2 (Version None)
Quarter: 2010Q3

REPORT INFORMATION
  Report Type: 
  Country: None (occurrence: None)
  Receive Date: 20100813
  Receipt Date: 20091215
  Transmission Date: 20110219
  Serious: No
  Sender: FDA-Public Use
  Company Number: US-BRISTOL-MYERS SQUIBB COMPANY-14895544

PATIENT
  Age: 21 Year
  Sex: Male

DRUGS (3)
  1. REYATAZ [Suspect]
  2. TRUVADA [Concomitant]
  3. RITONAVIR [Concomitant]

REACTIONS (1)
  - ANAEMIA [None]
